FAERS Safety Report 6306270-7 (Version None)
Quarter: 2009Q3

REPORT INFORMATION
  Report Type: 
  Country: None (occurrence: None)
  Receive Date: 20090812
  Receipt Date: 20090804
  Transmission Date: 20100115
  Serious: Yes (Other)
  Sender: FDA-Public Use
  Company Number: PHHY2009GB24799

PATIENT
  Sex: Female
  Weight: 79 kg

DRUGS (6)
  1. ZOMETA [Suspect]
     Indication: BREAST CANCER
     Dosage: UNK
     Route: 042
     Dates: start: 20040105, end: 20080211
  2. ZOMETA [Suspect]
     Indication: BONE PAIN
  3. DICLOFENAC [Concomitant]
     Indication: PAIN
     Dosage: 50 MG DAILY
     Route: 048
  4. CO-DANTHRAMER [Concomitant]
     Indication: CONSTIPATION
     Dosage: 20 MG QDS
  5. PREGABALIN [Concomitant]
     Indication: PAIN
     Dosage: 200 MG PID
     Route: 048
     Dates: start: 20080701
  6. RADIATION THERAPY [Concomitant]

REACTIONS (10)
  - GENERAL PHYSICAL HEALTH DETERIORATION [None]
  - GINGIVAL ERYTHEMA [None]
  - GINGIVAL INFECTION [None]
  - GINGIVAL SWELLING [None]
  - IMPAIRED HEALING [None]
  - OSTEONECROSIS [None]
  - PAIN IN JAW [None]
  - SOFT TISSUE INFECTION [None]
  - TOOTH EXTRACTION [None]
  - ULCER [None]
